FAERS Safety Report 4606028-0 (Version None)
Quarter: 2005Q1

REPORT INFORMATION
  Report Type: 
  Country: None (occurrence: None)
  Receive Date: 20050311
  Receipt Date: 20050210
  Transmission Date: 20050727
  Serious: Yes (Hospitalization)
  Sender: FDA-Public Use
  Company Number: AU-ROCHE-395092

PATIENT
  Age: 69 Year
  Sex: Female

DRUGS (2)
  1. CAPECITABINE [Suspect]
     Dosage: TWO WEEKS TREATMENT FOLLOWED BY ONE WEEK REST.
     Route: 048
     Dates: start: 20040315
  2. NAVELBINE [Suspect]
     Route: 048
     Dates: start: 20040315

REACTIONS (6)
  - BACTERIAL INFECTION [None]
  - BONE PAIN [None]
  - CULTURE URINE POSITIVE [None]
  - ESCHERICHIA INFECTION [None]
  - HERPES ZOSTER [None]
  - RASH VESICULAR [None]
